FAERS Safety Report 7247545-7 (Version None)
Quarter: 2011Q1

REPORT INFORMATION
  Report Type: 
  Country: None (occurrence: None)
  Receive Date: 20110127
  Receipt Date: 20110119
  Transmission Date: 20110831
  Serious: Yes (Other)
  Sender: FDA-Public Use
  Company Number: GXBR2011US00537

PATIENT
  Age: 58 Year
  Sex: Female
  Weight: 54.422 kg

DRUGS (6)
  1. AMBIEN [Concomitant]
  2. XANAX [Suspect]
     Indication: INSOMNIA
     Dosage: UNK MG, UNK
     Route: 048
  3. ITRACONAZOLE [Suspect]
  4. ANTIHISTAMINES [Concomitant]
  5. ALBUTEROL [Concomitant]
  6. XANAX [Suspect]
     Dosage: 2 MG, QID
     Route: 048

REACTIONS (15)
  - VOLVULUS [None]
  - RESPIRATORY TRACT INFECTION [None]
  - HAEMORRHAGE [None]
  - IRON BINDING CAPACITY TOTAL INCREASED [None]
  - OSTEOPOROSIS [None]
  - LARGE INTESTINE OPERATION [None]
  - SPINAL FRACTURE [None]
  - INFECTION [None]
  - MALAISE [None]
  - CARDIAC DISORDER [None]
  - DYSPNOEA [None]
  - MIDDLE INSOMNIA [None]
  - VASCULAR INJURY [None]
  - HAEMOGLOBIN DECREASED [None]
  - GASTROINTESTINAL DISORDER [None]
